FAERS Safety Report 6305271-2 (Version None)
Quarter: 2009Q3

REPORT INFORMATION
  Report Type: 
  Country: None (occurrence: None)
  Receive Date: 20090807
  Receipt Date: 20090727
  Transmission Date: 20100115
  Serious: Yes (Death, Other)
  Sender: FDA-Public Use
  Company Number: 2007-02415

PATIENT
  Age: 69 Year
  Sex: Female
  Weight: 50 kg

DRUGS (3)
  1. VELCADE [Suspect]
     Indication: MULTIPLE MYELOMA
     Dosage: 1.4 MG, INTRAVENOUS
     Route: 042
     Dates: start: 20070116, end: 20070306
  2. ZOVIRAX [Suspect]
     Indication: HERPES ZOSTER
     Dosage: 250 MG, INTRAVENOUS
     Route: 042
     Dates: start: 20070213, end: 20070219
  3. DEXAMETHASONE [Concomitant]

REACTIONS (2)
  - DISEASE PROGRESSION [None]
  - NEUROGENIC BLADDER [None]
